FAERS Safety Report 25526396 (Version 1)
Quarter: 2025Q3

REPORT INFORMATION
  Report Type: Spontaneous
  Country: US (occurrence: US)
  Receive Date: 20250707
  Receipt Date: 20250707
  Transmission Date: 20251021
  Serious: Yes (Other)
  Sender: PFIZER
  Company Number: US-PFIZER INC-202500133883

PATIENT
  Sex: Female

DRUGS (1)
  1. TISOTUMAB VEDOTIN [Suspect]
     Active Substance: TISOTUMAB VEDOTIN
     Indication: Cervix carcinoma
     Dosage: 2 MG/KG, EVERY 3 WEEKS

REACTIONS (2)
  - Ocular toxicity [Recovered/Resolved]
  - Blindness [Recovered/Resolved]
